FAERS Safety Report 6789525-1 (Version None)
Quarter: 2010Q2

REPORT INFORMATION
  Report Type: 
  Country: None (occurrence: None)
  Receive Date: 20100624
  Receipt Date: 20100615
  Transmission Date: 20101027
  Serious: Yes (Hospitalization)
  Sender: FDA-Public Use
  Company Number: US-BIOGENIDEC-2010BI019723

PATIENT
  Age: 30 Year
  Sex: Female

DRUGS (1)
  1. AVONEX [Suspect]
     Indication: MULTIPLE SCLEROSIS
     Route: 030
     Dates: start: 20100515

REACTIONS (10)
  - APHAGIA [None]
  - BALANCE DISORDER [None]
  - BLOOD DISORDER [None]
  - BRAIN OEDEMA [None]
  - COMA [None]
  - CONVULSION [None]
  - HYPOPHAGIA [None]
  - INFECTION [None]
  - RESPIRATORY FAILURE [None]
  - SEPSIS [None]
